FAERS Safety Report 26025785 (Version 1)
Quarter: 2025Q4

REPORT INFORMATION
  Report Type: Spontaneous
  Country: US (occurrence: US)
  Receive Date: 20251111
  Receipt Date: 20251111
  Transmission Date: 20260117
  Serious: Yes (Other)
  Sender: BAYER HEALTHCARE PHARMACEUTICALS INC.
  Company Number: US-BAYER-2025A147665

PATIENT
  Age: 33 Year
  Sex: Female

DRUGS (1)
  1. MIRENA [Suspect]
     Active Substance: LEVONORGESTREL
     Indication: Contraception
     Dosage: 20?G/DAY
     Route: 015
     Dates: end: 20250822

REACTIONS (6)
  - Seizure [None]
  - Seizure [None]
  - Seizure [None]
  - Seizure [None]
  - Loss of consciousness [None]
  - Post procedural complication circulatory [None]

NARRATIVE: CASE EVENT DATE: 20250827
